FAERS Safety Report 11064346 (Version 3)
Quarter: 2015Q2

REPORT INFORMATION
  Report Type: Spontaneous
  Country: FR (occurrence: FR)
  Receive Date: 20150424
  Receipt Date: 20150611
  Transmission Date: 20150821
  Serious: Yes (Death, Hospitalization, Other)
  Sender: FDA-Public Use
  Company Number: FR-GILEAD-2015-0150262

PATIENT
  Age: 65 Year
  Sex: Male

DRUGS (5)
  1. DOXYCYCLINE. [Suspect]
     Active Substance: DOXYCYCLINE
     Indication: PRODUCT USED FOR UNKNOWN INDICATION
     Dosage: UNK
     Route: 065
     Dates: start: 20141217
  2. ZYDELIG [Suspect]
     Active Substance: IDELALISIB
     Indication: CHRONIC LYMPHOCYTIC LEUKAEMIA
     Dosage: 150 MG, BID
     Route: 048
     Dates: start: 20141118, end: 20141216
  3. MABTHERA [Suspect]
     Active Substance: RITUXIMAB
     Indication: CHRONIC LYMPHOCYTIC LEUKAEMIA
     Dosage: UNK, CYCLICAL
     Route: 042
     Dates: start: 20141118, end: 20141216
  4. GLUCOPHAGE [Concomitant]
     Active Substance: METFORMIN HYDROCHLORIDE
     Dosage: 1700 MG, UNK
     Route: 048
  5. FASTURTEC [Concomitant]
     Active Substance: RASBURICASE
     Dosage: 1.5 MG/ML AT D1 AND D2 OF THE FIRST COURSE
     Route: 042
     Dates: start: 20141022, end: 20141023

REACTIONS (6)
  - Rash maculo-papular [Fatal]
  - Hypotension [Fatal]
  - Respiratory failure [Fatal]
  - Rash vesicular [Fatal]
  - Cardiac arrest [Fatal]
  - Face oedema [Fatal]

NARRATIVE: CASE EVENT DATE: 20141223
